FAERS Safety Report 9795380 (Version 3)
Quarter: 2014Q1

REPORT INFORMATION
  Report Type: Spontaneous
  Country: IT (occurrence: IT)
  Receive Date: 20140103
  Receipt Date: 20140210
  Transmission Date: 20141002
  Serious: No
  Sender: FDA-Public Use
  Company Number: IT-RANBAXY-2013RR-76650

PATIENT
  Age: 39 Year
  Sex: Male

DRUGS (2)
  1. PARACETAMOL [Suspect]
     Indication: PYREXIA
     Dosage: 1000 MG DAILY
     Route: 048
     Dates: start: 20130528, end: 20130601
  2. VELAMOX [Suspect]
     Indication: PYREXIA
     Dosage: 2 DOSAGE UNITS DAILY
     Route: 048
     Dates: start: 20130530, end: 20130601

REACTIONS (1)
  - Erythema [Unknown]
